FAERS Safety Report 4582371-9 (Version None)
Quarter: 2005Q1

REPORT INFORMATION
  Report Type: 
  Country: None (occurrence: None)
  Receive Date: 20050119
  Receipt Date: 20040213
  Transmission Date: 20050727
  Serious: Yes (Other)
  Sender: FDA-Public Use
  Company Number: US-JNJFOC-20031200870

PATIENT
  Age: 52 Year
  Sex: Female

DRUGS (1)
  1. DOXIL [Suspect]
     Indication: OVARIAN CANCER
     Dosage: 75 MG, 1 IN 4 WEEK, INTRAVENOUS
     Route: 042
     Dates: start: 20030801, end: 20031024

REACTIONS (2)
  - DISEASE PROGRESSION [None]
  - RASH [None]
